FAERS Safety Report 8592957-2 (Version None)
Quarter: 2012Q3

REPORT INFORMATION
  Report Type: 
  Country: None (occurrence: None)
  Receive Date: 20120814
  Receipt Date: 19890208
  Transmission Date: 20120928
  Serious: Yes (Hospitalization)
  Sender: FDA-Public Use
  Company Number: US-ROCHE-1099821

PATIENT
  Age: 56 Year
  Sex: Female

DRUGS (7)
  1. ISORDIL [Concomitant]
  2. ACTIVASE [Suspect]
     Indication: MYOCARDIAL INFARCTION
  3. CARDIZEM [Concomitant]
  4. HEPARIN [Concomitant]
  5. PERSANTINE [Concomitant]
     Route: 048
  6. ATENOLOL [Concomitant]
  7. ASPIRIN [Concomitant]

REACTIONS (1)
  - CHEST DISCOMFORT [None]
